FAERS Safety Report 19737744 (Version 1)
Quarter: 2021Q3

REPORT INFORMATION
  Report Type: Spontaneous
  Country: US (occurrence: US)
  Receive Date: 20210823
  Receipt Date: 20210823
  Transmission Date: 20211014
  Serious: Yes (Death)
  Sender: FDA-Public Use
  Company Number: US-AMNEAL PHARMACEUTICALS-2021-AMRX-03448

PATIENT

DRUGS (6)
  1. CARFILZOMIB [Suspect]
     Active Substance: CARFILZOMIB
     Dosage: NEXT 6 CYCLES, UNK (ON DAYS 1, 2, 15 AND 16)
     Route: 065
  2. CARFILZOMIB [Suspect]
     Active Substance: CARFILZOMIB
     Indication: PLASMA CELL MYELOMA REFRACTORY
     Dosage: FIRST 12 CYCLES, 20 MILLIGRAM/SQ. METER, 1 /DAY (ON DAY 1 AND 2)
     Route: 042
  3. CARFILZOMIB [Suspect]
     Active Substance: CARFILZOMIB
     Dosage: FIRST 12 CYCLES, 56MG/SQ M OR 36 MG/SQ M (ON DAY 8 AND ONWARDS)
     Route: 042
  4. THALIDOMIDE [Suspect]
     Active Substance: THALIDOMIDE
     Indication: PLASMA CELL MYELOMA REFRACTORY
     Dosage: FIRST 12 CYCLES, 100 MILLIGRAM, BEDTIME (NOCTE)
     Route: 048
  5. DEXAMETHASONE SODIUM PHOSPHATE. [Suspect]
     Active Substance: DEXAMETHASONE SODIUM PHOSPHATE
     Dosage: NEXT 6 CYCLES, UNK (ON DAYS DAYS 1 AND 15)
     Route: 065
  6. DEXAMETHASONE SODIUM PHOSPHATE. [Suspect]
     Active Substance: DEXAMETHASONE SODIUM PHOSPHATE
     Indication: PLASMA CELL MYELOMA REFRACTORY
     Dosage: FIRST 12 CYCLES, 40 MG OR 20 MG WEEKLY
     Route: 048

REACTIONS (1)
  - Myocardial ischaemia [Fatal]
